FAERS Safety Report 5794348-6 (Version None)
Quarter: 2008Q2

REPORT INFORMATION
  Report Type: 
  Country: None (occurrence: None)
  Receive Date: 20080625
  Receipt Date: 20080610
  Transmission Date: 20081010
  Serious: Yes (Hospitalization)
  Sender: FDA-Public Use
  Company Number: SPV1-2008-01281

PATIENT
  Age: 22 Year
  Sex: Male
  Weight: 79.4 kg

DRUGS (2)
  1. VYVANSE [Suspect]
     Indication: ATTENTION DEFICIT/HYPERACTIVITY DISORDER
     Dosage: 30 MG, 1X/DAY:QD, ORAL
     Route: 048
     Dates: start: 20080524, end: 20080606
  2. LEVOXYL [Concomitant]

REACTIONS (3)
  - HALLUCINATIONS, MIXED [None]
  - MANIA [None]
  - PARANOIA [None]
